FAERS Safety Report 4410670-X (Version None)
Quarter: 2004Q3

REPORT INFORMATION
  Report Type: 
  Country: None (occurrence: None)
  Receive Date: 20040726
  Receipt Date: 20040712
  Transmission Date: 20050211
  Serious: Yes (Hospitalization)
  Sender: FDA-Public Use
  Company Number: 04P-056-0266865-00

PATIENT
  Age: 34 Year
  Sex: Male
  Weight: 61 kg

DRUGS (5)
  1. NORVIR [Suspect]
     Indication: HIV INFECTION
     Dosage: 1 DOSAGE FORMS, 2 IN 1 D, PER ORAL
     Route: 048
  2. SAQUINAVIR [Suspect]
     Indication: HIV INFECTION
     Dosage: 1.6 GM, 1 IN 1 D, PER ORAL
     Route: 048
  3. LAMIVUDINE [Suspect]
     Indication: HIV INFECTION
     Dosage: 1 DOSAGE FORMS, 2 IN 1 D, PER ORAL
     Route: 048
  4. ABACAVIR [Suspect]
     Indication: HIV INFECTION
     Dosage: 1 DOSAGE FORMS, 2 IN 1 D, PER ORAL
     Route: 048
  5. GABAPENTIN [Concomitant]

REACTIONS (2)
  - BASEDOW'S DISEASE [None]
  - HYPOTHYROIDISM [None]
